FAERS Safety Report 15864433 (Version 2)
Quarter: 2019Q1

REPORT INFORMATION
  Report Type: Spontaneous
  Country: FR (occurrence: FR)
  Receive Date: 20190124
  Receipt Date: 20190207
  Transmission Date: 20190417
  Serious: Yes (Other)
  Sender: FDA-Public Use
  Company Number: PHHY2019FR012808

PATIENT
  Age: 80 Year
  Sex: Female
  Weight: 74 kg

DRUGS (12)
  1. ARIPIPRAZOLE. [Suspect]
     Active Substance: ARIPIPRAZOLE
     Indication: PRODUCT USED FOR UNKNOWN INDICATION
     Dosage: 5 MG, QD
     Route: 048
  2. AZITHROMYCIN MONOHYDRATE. [Suspect]
     Active Substance: AZITHROMYCIN MONOHYDRATE
     Indication: CAMPYLOBACTER GASTROENTERITIS
     Dosage: 500 MG, QD
     Route: 048
     Dates: start: 20181212, end: 20181213
  3. XEPLION [Suspect]
     Active Substance: PALIPERIDONE PALMITATE
     Indication: PRODUCT USED FOR UNKNOWN INDICATION
     Dosage: 1 DF, QMO (1 UG/LITRE)
     Route: 030
  4. SMECTA [Suspect]
     Active Substance: MONTMORILLONITE
     Indication: DIARRHOEA
     Dosage: 3 DF, QD (3 SACHET/ DAY)
     Route: 048
     Dates: start: 20181210, end: 20181211
  5. PARACETAMOL [Suspect]
     Active Substance: ACETAMINOPHEN
     Indication: ANALGESIC INTERVENTION SUPPORTIVE THERAPY
     Dosage: 4 G, QD
     Route: 042
     Dates: start: 20181210
  6. LEVOTHYROXINE SODIUM. [Suspect]
     Active Substance: LEVOTHYROXINE SODIUM
     Indication: HYPOTHYROIDISM
     Dosage: 87.5 UG, QD
     Route: 048
  7. TIORFAN [Suspect]
     Active Substance: RACECADOTRIL
     Indication: DIARRHOEA
     Dosage: 3 DF, QD (3 UG/LITRE)
     Route: 048
     Dates: start: 20181210
  8. TIORFAN [Suspect]
     Active Substance: RACECADOTRIL
     Dosage: 3 DF, QD (3 UG/LITRE)
     Route: 048
     Dates: start: 20181214
  9. ABILIFY [Suspect]
     Active Substance: ARIPIPRAZOLE
     Indication: PRODUCT USED FOR UNKNOWN INDICATION
     Dosage: 5 MG, QD
     Route: 048
  10. KALEORID LP [Suspect]
     Active Substance: POTASSIUM CHLORIDE
     Indication: HYPOKALAEMIA
     Dosage: 6 G, QD
     Route: 048
     Dates: start: 20181213
  11. RACECADOTRIL [Suspect]
     Active Substance: RACECADOTRIL
     Indication: DIARRHOEA
     Dosage: 3 DF, QD (3 DOSAGE FORM EVERY 1 DAY)
     Route: 048
     Dates: start: 20181210, end: 20181214
  12. POTASSIUM CHLORIDE. [Suspect]
     Active Substance: POTASSIUM CHLORIDE
     Indication: HYPOKALAEMIA
     Dosage: 6 G, QD
     Route: 048
     Dates: start: 20181213

REACTIONS (1)
  - Atrial fibrillation [Recovered/Resolved]

NARRATIVE: CASE EVENT DATE: 20181213
